FAERS Safety Report 25100597 (Version 2)
Quarter: 2025Q1

REPORT INFORMATION
  Report Type: Spontaneous
  Country: IN (occurrence: IN)
  Receive Date: 20250320
  Receipt Date: 20250328
  Transmission Date: 20250408
  Serious: Yes (Other)
  Sender: GILEAD
  Company Number: IN-GILEAD-2025-0707716

PATIENT
  Age: 36 Year
  Sex: Female

DRUGS (4)
  1. VIREAD [Suspect]
     Active Substance: TENOFOVIR DISOPROXIL FUMARATE
     Indication: HIV infection
     Route: 065
  2. LAMIVUDINE [Concomitant]
     Active Substance: LAMIVUDINE
  3. RITONAVIR [Concomitant]
     Active Substance: RITONAVIR
  4. ATAZANAVIR [Concomitant]
     Active Substance: ATAZANAVIR

REACTIONS (3)
  - Osteoporosis [Unknown]
  - Femoral neck fracture [Unknown]
  - Fanconi syndrome acquired [Recovering/Resolving]
